FAERS Safety Report 12155446 (Version 3)
Quarter: 2016Q3

REPORT INFORMATION
  Report Type: Report from Study
  Country: US (occurrence: US)
  Receive Date: 20160307
  Receipt Date: 20160704
  Transmission Date: 20161109
  Serious: Yes (Hospitalization)
  Sender: FDA-Public Use
  Company Number: US-JNJFOC-20160304592

PATIENT
  Age: 77 Year
  Sex: Female

DRUGS (6)
  1. IMBRUVICA [Suspect]
     Active Substance: IBRUTINIB
     Indication: CHRONIC LYMPHOCYTIC LEUKAEMIA
     Route: 048
     Dates: start: 20140322, end: 201602
  2. METOPROLOL. [Concomitant]
     Active Substance: METOPROLOL
  3. VITAMIN D [Concomitant]
     Active Substance: CHOLECALCIFEROL
  4. LEVOTHYROXINE. [Concomitant]
     Active Substance: LEVOTHYROXINE
  5. WARFARIN [Concomitant]
     Active Substance: WARFARIN
  6. LASIX [Concomitant]
     Active Substance: FUROSEMIDE

REACTIONS (7)
  - Incorrect dose administered [Not Recovered/Not Resolved]
  - Pneumonia [Unknown]
  - International normalised ratio increased [Unknown]
  - Cough [Unknown]
  - Internal haemorrhage [Unknown]
  - Off label use [Unknown]
  - Muscle rupture [Unknown]

NARRATIVE: CASE EVENT DATE: 20140322
